FAERS Safety Report 5938595-9 (Version None)
Quarter: 2008Q4

REPORT INFORMATION
  Report Type: 
  Country: None (occurrence: None)
  Receive Date: 20081103
  Receipt Date: 20081023
  Transmission Date: 20090506
  Serious: Yes (Hospitalization)
  Sender: FDA-Public Use
  Company Number: PT-JNJFOC-20070702580

PATIENT
  Sex: Male
  Weight: 72 kg

DRUGS (3)
  1. REMICADE [Suspect]
     Route: 042
  2. REMICADE [Suspect]
     Route: 042
  3. REMICADE [Suspect]
     Indication: ANKYLOSING SPONDYLITIS
     Dosage: STARTED AT 6-WEEK INTERVAL, THEN 8 WEEK INTERVALS (DATE UNKNOWN)
     Route: 042

REACTIONS (1)
  - DISSEMINATED TUBERCULOSIS [None]
